FAERS Safety Report 4591350-7 (Version None)
Quarter: 2005Q1

REPORT INFORMATION
  Report Type: 
  Country: None (occurrence: None)
  Receive Date: 20050222
  Receipt Date: 20050204
  Transmission Date: 20050727
  Serious: Yes (Other)
  Sender: FDA-Public Use
  Company Number: TRP_0066_2005

PATIENT
  Age: 41 Year
  Sex: Female

DRUGS (3)
  1. RIBASPHERE [Suspect]
     Indication: HEPATITIS C
     Dates: start: 20040618
  2. PEG-INTRON [Suspect]
     Indication: HEPATITIS C
     Dates: start: 20040618
  3. LEVOXYL [Concomitant]

REACTIONS (6)
  - ANAEMIA [None]
  - ANGER [None]
  - CONDITION AGGRAVATED [None]
  - CRYING [None]
  - DEPRESSION [None]
  - THYROID DISORDER [None]
